FAERS Safety Report 8773954 (Version 1)
Quarter: 2012Q4

REPORT INFORMATION
  Report Type: 
  Country: CN (occurrence: CN)
  Receive Date: 20120908
  Receipt Date: 20120923
  Transmission Date: 20130627
  Serious: Yes (Other)
  Sender: FDA-Public Use
  Company Number: CN-ABBOTT-12P-035-0976465-00

PATIENT
  Age: 56 Year
  Sex: Male

DRUGS (5)
  1. VALPROIC ACID [Suspect]
     Indication: EPILEPSY
     Route: 048
     Dates: start: 2009, end: 201202
  2. VALPROIC ACID [Suspect]
     Dosage: Twice a day
     Route: 048
     Dates: start: 201202, end: 201207
  3. VALPROIC ACID [Suspect]
     Dosage: Twice a day
     Route: 048
     Dates: start: 201207, end: 20120826
  4. VALPROIC ACID [Suspect]
     Dosage: Twice a day
     Route: 048
     Dates: start: 20120827
  5. LAMOTRIGINE [Concomitant]
     Indication: EPILEPSY
     Dates: start: 201202

REACTIONS (2)
  - Suspected counterfeit product [Unknown]
  - Convulsion [Recovered/Resolved]
